FAERS Safety Report 17093373 (Version 1)
Quarter: 2019Q4

REPORT INFORMATION
  Report Type: Spontaneous
  Country: SE (occurrence: SE)
  Receive Date: 20191129
  Receipt Date: 20191129
  Transmission Date: 20200122
  Serious: Yes (Hospitalization)
  Sender: FDA-Public Use
  Company Number: SE-009507513-1911SWE009644

PATIENT

DRUGS (4)
  1. IKTORIVIL [Suspect]
     Active Substance: CLONAZEPAM
     Dosage: APPROXIMATELY 20 PIECES OF 2MG
     Route: 048
     Dates: start: 201803, end: 201803
  2. LERGIGAN (PROMETHAZINE HYDROCHLORIDE) [Suspect]
     Active Substance: PROMETHAZINE HYDROCHLORIDE
     Dosage: 7-8 PIECES
     Route: 048
     Dates: start: 201803, end: 201803
  3. MIRTAZAPINE. [Suspect]
     Active Substance: MIRTAZAPINE
     Dosage: SINGLE
     Route: 048
     Dates: start: 201803, end: 201803
  4. IMOVANE [Suspect]
     Active Substance: ZOPICLONE
     Dosage: POSSIBLY IMOVANE (ZOPICLONE), UNKNOWN AMOUNT ?ACCORDING TO OTHERS
     Route: 048
     Dates: start: 201803, end: 201803

REACTIONS (2)
  - Somnolence [Unknown]
  - Intentional overdose [Unknown]

NARRATIVE: CASE EVENT DATE: 201803
